FAERS Safety Report 4603294-2 (Version None)
Quarter: 2005Q1

REPORT INFORMATION
  Report Type: 
  Country: None (occurrence: None)
  Receive Date: 20050308
  Receipt Date: 20050223
  Transmission Date: 20050727
  Serious: Yes (Hospitalization, Disabling, Other)
  Sender: FDA-Public Use
  Company Number: 2005036365

PATIENT
  Age: 16 Year
  Sex: Female

DRUGS (7)
  1. ATARAX [Suspect]
     Indication: ILL-DEFINED DISORDER
     Dates: start: 20010706
  2. SOLU-MEDROL [Suspect]
     Indication: ILL-DEFINED DISORDER
     Dosage: 40 MG, INTRAVENOUS
     Route: 042
     Dates: start: 20010706
  3. AMOXICILLIN TRIHYDRATE [Suspect]
     Indication: ILL-DEFINED DISORDER
  4. PROPACETAMOL HYDROCHLORIDE (PROPACETAMOL HYDROCHORIDE) [Suspect]
     Indication: ILL-DEFINED DISORDER
     Dosage: 2 GRAM, INTRAVENOUS
     Route: 042
     Dates: start: 20010706
  5. PROPOFOL [Suspect]
     Indication: ILL-DEFINED DISORDER
     Dosage: 100 MG, INTRAVENOUS
     Route: 042
     Dates: start: 20010706
  6. MIVACURIUM CHLORIDE (MIVACURIM CHLORIDE) [Suspect]
     Indication: ILL-DEFINED DISORDER
     Dosage: 4 MG, INTRAVENOUS
     Route: 042
     Dates: start: 20010701
  7. ALFENTANIL HYDROCHLORIDE (ALFENTANIL HYDROCHLORIDE) [Concomitant]

REACTIONS (7)
  - BRADYCARDIA [None]
  - BRAIN OEDEMA [None]
  - BRONCHOSPASM [None]
  - CEREBRAL ISCHAEMIA [None]
  - COMA [None]
  - PROCEDURAL COMPLICATION [None]
  - VENTRICULAR FIBRILLATION [None]
